FAERS Safety Report 7103534-4 (Version None)
Quarter: 2010Q4

REPORT INFORMATION
  Report Type: 
  Country: None (occurrence: None)
  Receive Date: 20101115
  Receipt Date: 20090813
  Transmission Date: 20110411
  Serious: No
  Sender: FDA-Public Use
  Company Number: US-KINGPHARMUSA00001-K200901005

PATIENT
  Age: 45 Year
  Sex: Female

DRUGS (7)
  1. LEVOXYL [Suspect]
     Indication: AUTOIMMUNE THYROIDITIS
     Dosage: 50 MCG, QD
     Route: 048
     Dates: start: 20081201
  2. LEVOXYL [Suspect]
     Dosage: 75 MCG, QD
     Route: 048
     Dates: start: 20090401, end: 20090601
  3. LEVOXYL [Suspect]
     Dosage: 50 MCG, TWO TABLETS DAILY
     Route: 048
     Dates: start: 20090601, end: 20090601
  4. LEVOXYL [Suspect]
     Dosage: 100 MCG, QD
     Route: 048
     Dates: start: 20090601, end: 20090701
  5. LEVOXYL [Suspect]
     Dosage: 88 MCG, QD
     Route: 048
     Dates: start: 20090714, end: 20090701
  6. LEVOXYL [Suspect]
     Dosage: 75 MCG, QD
     Route: 048
     Dates: start: 20090701, end: 20090801
  7. LEVOXYL [Suspect]
     Dosage: 37.5 MCG, QD
     Route: 048
     Dates: start: 20090801

REACTIONS (14)
  - AGITATION [None]
  - ANGER [None]
  - CONSTIPATION [None]
  - DISTURBANCE IN ATTENTION [None]
  - DYSPEPSIA [None]
  - HEADACHE [None]
  - HOT FLUSH [None]
  - HYPERHIDROSIS [None]
  - MICTURITION URGENCY [None]
  - MOOD SWINGS [None]
  - MYALGIA [None]
  - PALPITATIONS [None]
  - VISUAL ACUITY REDUCED [None]
  - WEIGHT INCREASED [None]
